FAERS Safety Report 10239387 (Version 1)
Quarter: 2014Q1

REPORT INFORMATION
  Report Type: Spontaneous
  Country: US (occurrence: None)
  Receive Date: 20140306
  Receipt Date: 20140306
  Transmission Date: 20141002
  Serious: Yes (Other)
  Sender: FDA-Public Use
  Company Number: 163-21880-13041443

PATIENT
  Age: 66 Year
  Sex: Female
  Weight: 99.8 kg

DRUGS (23)
  1. REVLIMID (LENALIDOMIDE) (15 MILLIGRAM, CAPSULES) [Suspect]
     Indication: PLASMA CELL MYELOMA
     Route: 048
     Dates: start: 201103, end: 2011
  2. DEXAMETHASONE (DEXAMETHASONE) [Concomitant]
  3. ZOMETA (ZOLEDRONIC ACID) [Concomitant]
  4. POTASSIUM CL (POTASSIUM CHLORIDE) [Concomitant]
  5. HYDROMET (ALDORIL) [Concomitant]
  6. CALCIUM W/ VITAMIN D (LEKOVIT CA) [Concomitant]
  7. MAGNESIUM (MAGNESIUM) [Concomitant]
  8. RAMIPRIL (RAMIPRIL) [Concomitant]
  9. VITAMIN D3 (COLECALCIFEROL) [Concomitant]
  10. K-PHOS #2 (POLYFUSOR PHOSPHAT) [Concomitant]
  11. ACYCLOVIR (ACICLOVIR) (ACICLOVIR) [Concomitant]
  12. EC ASPIRIN [Concomitant]
  13. BACTRIM DS (BACTRIM) [Concomitant]
  14. NITROGLYCERINE (GLYCERYL TRINITRATE) [Concomitant]
  15. CHLOREXIDINE GLUCONATE (CHLORHEXIDINE GLUCONATE) [Concomitant]
  16. DEXILANT (DEXLANSOPRAZOLE) [Concomitant]
  17. EMETROL (EMETROL) [Concomitant]
  18. AMBIEN (ZOLPIDEM TARTRATE) [Concomitant]
  19. ANASTROZOLE (ANASTROZOLE) [Concomitant]
  20. SIMVASTATIN (SIMVASTATIN) [Concomitant]
  21. LEVOFLOXACIN (LEVOFLOXACIN) [Concomitant]
  22. CARVEDILOL (CARVEDILOL) [Concomitant]
  23. LANSOPRAZOLE (LANSOPRAZOLE) [Concomitant]

REACTIONS (11)
  - Diarrhoea [None]
  - Inappropriate schedule of drug administration [None]
  - Drug dose omission [None]
  - Eye pain [None]
  - Toothache [None]
  - Productive cough [None]
  - Malaise [None]
  - Vomiting [None]
  - Headache [None]
  - Sinus congestion [None]
  - Nasopharyngitis [None]
